FAERS Safety Report 6371156-9 (Version None)
Quarter: 2009Q3

REPORT INFORMATION
  Report Type: 
  Country: None (occurrence: None)
  Receive Date: 20090923
  Receipt Date: 20090917
  Transmission Date: 20100115
  Serious: Yes (Hospitalization, Other)
  Sender: FDA-Public Use
  Company Number: US-MERCK-0901USA04281

PATIENT
  Age: 53 Year
  Sex: Female

DRUGS (11)
  1. FOSAMAX [Suspect]
     Indication: OSTEOPOROSIS
     Route: 048
     Dates: start: 19980301, end: 20060601
  2. FOSAMAX [Suspect]
     Route: 048
     Dates: start: 20010301
  3. FOSAMAX [Suspect]
     Route: 048
     Dates: start: 20050601, end: 20060601
  4. CITRACAL [Concomitant]
     Route: 065
  5. DILANTIN [Concomitant]
     Route: 048
  6. MYSOLINE [Concomitant]
     Indication: ESSENTIAL TREMOR
     Route: 065
  7. ESTRATAB [Concomitant]
     Route: 065
  8. PROVERA [Concomitant]
     Route: 065
  9. HYDROCODONE [Concomitant]
     Route: 065
  10. DECADRON [Concomitant]
     Route: 065
  11. PRIMIDONE [Concomitant]
     Indication: TREMOR
     Route: 065
     Dates: start: 19970101

REACTIONS (24)
  - ABDOMINAL DISCOMFORT [None]
  - ABSCESS [None]
  - ACUTE SINUSITIS [None]
  - ADVERSE DRUG REACTION [None]
  - ADVERSE EVENT [None]
  - BREAST DISORDER [None]
  - BRONCHITIS [None]
  - CERVICAL DYSPLASIA [None]
  - DRUG ADMINISTRATION ERROR [None]
  - DRUG HYPERSENSITIVITY [None]
  - DRUG INEFFECTIVE [None]
  - DRUG INTOLERANCE [None]
  - FATIGUE [None]
  - GINGIVAL BLEEDING [None]
  - HYPERVITAMINOSIS [None]
  - NEUROPATHY PERIPHERAL [None]
  - OEDEMA PERIPHERAL [None]
  - ORAL INFECTION [None]
  - OSTEONECROSIS [None]
  - RECTAL HAEMORRHAGE [None]
  - RECTAL POLYP [None]
  - RESORPTION BONE INCREASED [None]
  - SICK SINUS SYNDROME [None]
  - TOOTH DISORDER [None]
